FAERS Safety Report 24234605 (Version 1)
Quarter: 2024Q3

REPORT INFORMATION
  Report Type: Spontaneous
  Country: US (occurrence: None)
  Receive Date: 20240820
  Receipt Date: 20240820
  Transmission Date: 20241017
  Serious: Yes (Hospitalization)
  Sender: Public
  Company Number: None

PATIENT
  Sex: Male

DRUGS (1)
  1. HEMOFIL M [Suspect]
     Active Substance: ANTIHEMOPHILIC FACTOR HUMAN
     Indication: Factor VIII deficiency
     Dosage: FREQ: HEMOFIL M 269 UNITS/VIAL, 1 VIAL. INFUSE ONE 269 UNIT VIAL, ONE 473 UNIT VIAL, AND TWO 1960 UN
     Route: 042
     Dates: start: 20220811

REACTIONS (1)
  - Hospitalisation [None]
